FAERS Safety Report 12602212 (Version 2)
Quarter: 2016Q4

REPORT INFORMATION
  Report Type: Spontaneous
  Country: US (occurrence: US)
  Receive Date: 20160728
  Receipt Date: 20161206
  Transmission Date: 20170207
  Serious: No
  Sender: FDA-Public Use
  Company Number: US-PFIZER INC-2016353263

PATIENT
  Age: 68 Year
  Sex: Female

DRUGS (1)
  1. IBRANCE [Suspect]
     Active Substance: PALBOCICLIB
     Dosage: 125 MG, CYCLIC (21 CONSECUTIVE DAYS, REST FOR 7 DAYS, THEN CONTINUE)
     Route: 048

REACTIONS (2)
  - Diarrhoea [Unknown]
  - Alopecia [Unknown]
